FAERS Safety Report 5125357-8 (Version None)
Quarter: 2006Q4

REPORT INFORMATION
  Report Type: 
  Country: None (occurrence: None)
  Receive Date: 20061006
  Receipt Date: 20060926
  Transmission Date: 20070319
  Serious: Yes (Hospitalization, Other)
  Sender: FDA-Public Use
  Company Number: 2005114607

PATIENT
  Age: 18 Year
  Sex: Female

DRUGS (20)
  1. NEURONTIN [Suspect]
     Indication: DEPRESSION
     Dosage: 600 MG (300 MG)
     Dates: start: 19990101
  2. DILANTIN [Suspect]
     Indication: CONVULSION
     Dosage: (50 MG)
     Dates: start: 19980201
  3. PHENYTOIN [Suspect]
     Dosage: 100 MG
  4. ALL OTHER NON-THERAPEUTIC PRODUCTS (ALL OTHER NON-THERAPEUTIC PRODUCTS [Suspect]
  5. ALCOHOL (ETHANOL) [Suspect]
  6. TOPAMAX [Suspect]
     Dosage: (100 MG)
  7. BENZTROPINE MESYLATE [Concomitant]
  8. RISPERDAL [Concomitant]
  9. TRAZODONE HCL [Concomitant]
  10. AMBIEN [Concomitant]
  11. HALOPERIDOL [Concomitant]
  12. VALIUM [Concomitant]
  13. ZOLOFT [Concomitant]
  14. IBUPROFEN [Concomitant]
  15. ALPRAZOLAM [Concomitant]
  16. REMERON [Concomitant]
  17. ROXICET [Concomitant]
  18. CARISOPRODOL [Concomitant]
  19. CYCLOBENZAPRINE HCL [Concomitant]
  20. HYDROCODONE BITARTRATE + ACETAMINOPHEN [Concomitant]

REACTIONS (29)
  - AGGRESSION [None]
  - AGITATION [None]
  - AMNESIA [None]
  - ANOREXIA [None]
  - ANTICONVULSANT DRUG LEVEL BELOW THERAPEUTIC [None]
  - ANXIETY [None]
  - BORDERLINE PERSONALITY DISORDER [None]
  - CONDITION AGGRAVATED [None]
  - CONVULSION [None]
  - DEPRESSION [None]
  - DRUG INEFFECTIVE [None]
  - EMOTIONAL DISTRESS [None]
  - FEELING ABNORMAL [None]
  - GENERALISED ANXIETY DISORDER [None]
  - HALLUCINATION, AUDITORY [None]
  - HEADACHE [None]
  - INSOMNIA [None]
  - IRRITABILITY [None]
  - LACERATION [None]
  - MAJOR DEPRESSION [None]
  - MENTAL DISORDER [None]
  - MULTIPLE DRUG OVERDOSE INTENTIONAL [None]
  - PHARYNGITIS [None]
  - POST-TRAUMATIC STRESS DISORDER [None]
  - PSYCHOTIC DISORDER [None]
  - SELF INJURIOUS BEHAVIOUR [None]
  - SEXUAL ASSAULT VICTIM [None]
  - SUBSTANCE ABUSE [None]
  - SUICIDE ATTEMPT [None]
